FAERS Safety Report 5266849-0 (Version None)
Quarter: 2007Q1

REPORT INFORMATION
  Report Type: 
  Country: None (occurrence: None)
  Receive Date: 20070307
  Receipt Date: 20070206
  Transmission Date: 20070707
  Serious: No
  Sender: FDA-Public Use
  Company Number: 200711550

PATIENT
  Age: 14 Year
  Sex: Male

DRUGS (12)
  1. HUMATE-P [Suspect]
     Indication: FACTOR VIII DEFICIENCY
     Dosage: IV
     Route: 042
     Dates: start: 20061201, end: 20061205
  2. HUMATE-P [Suspect]
     Indication: SUTURE REMOVAL
     Dosage: IV
     Route: 042
     Dates: start: 20061201, end: 20061205
  3. HUMATE-P [Suspect]
     Dates: start: 20061201, end: 20061201
  4. HUMATE-P [Suspect]
     Dates: start: 20061206, end: 20061206
  5. HUMATE-P [Suspect]
     Dates: start: 20061206, end: 20061206
  6. HUMATE-P [Suspect]
     Dates: start: 20061208, end: 20061209
  7. HUMATE-P [Suspect]
     Dates: start: 20061209, end: 20061212
  8. HUMATE-P [Suspect]
     Dates: start: 20061211, end: 20061220
  9. HUMATE-P [Suspect]
     Dates: start: 20061212, end: 20061213
  10. HUMATE-P [Suspect]
     Dates: start: 20061212, end: 20061221
  11. HUMATE-P [Suspect]
     Dates: start: 20061222, end: 20061230
  12. HUMATE-P [Suspect]
     Dates: start: 20070101, end: 20070125

REACTIONS (7)
  - DISCOMFORT [None]
  - FALL [None]
  - JOINT SPRAIN [None]
  - JOINT SWELLING [None]
  - NO THERAPEUTIC RESPONSE [None]
  - THROMBOSIS [None]
  - WOUND HAEMORRHAGE [None]
